FAERS Safety Report 22632508 (Version 3)
Quarter: 2024Q3

REPORT INFORMATION
  Report Type: Report from Study
  Country: JP (occurrence: JP)
  Receive Date: 20230623
  Receipt Date: 20240715
  Transmission Date: 20241017
  Serious: Yes (Other)
  Sender: NOVARTIS
  Company Number: JP-002147023-NVSJ2023JP009919

PATIENT
  Age: 82 Year
  Sex: Female

DRUGS (3)
  1. TABRECTA [Suspect]
     Active Substance: CAPMATINIB
     Indication: Non-small cell lung cancer stage IV
     Dosage: 400 MG
     Route: 048
     Dates: start: 20230524, end: 20230607
  2. TABRECTA [Suspect]
     Active Substance: CAPMATINIB
     Dosage: 200 MG
     Route: 048
     Dates: start: 20230614, end: 20230712
  3. TABRECTA [Suspect]
     Active Substance: CAPMATINIB
     Dosage: 400 MG
     Route: 048
     Dates: start: 20230713

REACTIONS (3)
  - Loss of consciousness [Recovered/Resolved]
  - Autonomic nervous system imbalance [Unknown]
  - Visual field defect [Unknown]

NARRATIVE: CASE EVENT DATE: 20230604
